FAERS Safety Report 19284336 (Version 1)
Quarter: 2021Q2

REPORT INFORMATION
  Report Type: Spontaneous
  Country: US (occurrence: US)
  Receive Date: 20210521
  Receipt Date: 20210521
  Transmission Date: 20210717
  Serious: No
  Sender: FDA-Public Use
  Company Number: None

PATIENT
  Age: 66 Year
  Sex: Female
  Weight: 139.7 kg

DRUGS (9)
  1. TRAMADOL. [Suspect]
     Active Substance: TRAMADOL
  2. SIMVASTATIN. [Suspect]
     Active Substance: SIMVASTATIN
  3. PROPAFENONE. [Suspect]
     Active Substance: PROPAFENONE
  4. IBRANCE [Suspect]
     Active Substance: PALBOCICLIB
     Indication: BREAST CANCER
     Dosage: ?          OTHER FREQUENCY:DAILY X 21 DAYS;?
     Route: 048
     Dates: start: 20210316
  5. LISINOPRIL. [Suspect]
     Active Substance: LISINOPRIL
  6. FUROSEMIDE. [Suspect]
     Active Substance: FUROSEMIDE
  7. HYDRCHLOROTHIAZIDE [Concomitant]
  8. LETROZOLE. [Suspect]
     Active Substance: LETROZOLE
  9. XARELTO [Suspect]
     Active Substance: RIVAROXABAN

REACTIONS (2)
  - Therapy change [None]
  - Fatigue [None]

NARRATIVE: CASE EVENT DATE: 20210521
